FAERS Safety Report 8202724-7 (Version None)
Quarter: 2012Q1

REPORT INFORMATION
  Report Type: 
  Country: None (occurrence: None)
  Receive Date: 20120312
  Receipt Date: 20120307
  Transmission Date: 20120608
  Serious: Yes (Death)
  Sender: FDA-Public Use
  Company Number: CA-ASTRAZENECA-2011SE67387

PATIENT
  Age: 9 Year
  Sex: Male

DRUGS (19)
  1. FLOVENT HFA [Suspect]
     Dosage: 250 MCG, TWO EVERY DAY
     Route: 055
  2. METHYLPHENIDATE HCL [Suspect]
     Route: 065
     Dates: start: 20070101
  3. CLONIDINE [Suspect]
     Dosage: 0.1 MG 1/4
     Route: 065
     Dates: start: 20070101
  4. FLOVENT HFA [Suspect]
     Dosage: 125 MCG
     Route: 055
     Dates: start: 20080101
  5. NASONEX [Suspect]
     Dosage: 50 MCG
     Route: 045
     Dates: start: 20080101
  6. ZYPREXA [Suspect]
     Dosage: 2.5MG, THREE EVERY ONE DAY
     Route: 065
  7. STRATTERA [Suspect]
     Dosage: 40MG, TWO EVERY ONE DAY
     Route: 065
     Dates: start: 20070101
  8. HALOPERIDOL [Suspect]
     Route: 065
     Dates: start: 20070101
  9. SERTRALINE HYDROCHLORIDE [Suspect]
     Dosage: 20MG, TWO EVERY DAY
     Route: 065
  10. SERTRALINE HYDROCHLORIDE [Suspect]
     Dosage: 25MG, ONE EVERY DAY
     Route: 065
  11. METHYLPHENIDATE HCL [Suspect]
     Route: 065
     Dates: start: 20080101
  12. CLONIDINE [Suspect]
     Dosage: 25MG, TWO EVERY ONE DAY
  13. ALBUTEROL [Suspect]
     Dosage: 100 MCG 2 INHALATIONS
     Route: 055
  14. ZYPREXA [Suspect]
     Dosage: 2.5MG BID
     Route: 065
     Dates: start: 20070101
  15. CLONIDINE [Suspect]
     Dosage: 50MG, TWO EVERY ONE DAY
     Route: 065
  16. SEROQUEL [Suspect]
     Route: 048
     Dates: start: 20070101
  17. ALBUTEROL [Suspect]
     Dosage: 200 MCG, TWO EVERY ONE DAY
     Route: 055
  18. NASONEX [Suspect]
     Dosage: 100 MCG, TWO EVERY ONE DAY
     Route: 045
  19. ZYPREXA [Suspect]
     Dosage: 2.5MG, TWO EVERY ONE DAY
     Route: 065

REACTIONS (7)
  - EYE MOVEMENT DISORDER [None]
  - DYSPNOEA [None]
  - DIZZINESS [None]
  - DYSSTASIA [None]
  - GASTRIC DILATATION [None]
  - WEIGHT INCREASED [None]
  - GASTROINTESTINAL SOUNDS ABNORMAL [None]
